FAERS Safety Report 4404180-3 (Version None)
Quarter: 2004Q3

REPORT INFORMATION
  Report Type: 
  Country: None (occurrence: None)
  Receive Date: 20040719
  Receipt Date: 20040628
  Transmission Date: 20050211
  Serious: Yes (Death, Life-Threatening)
  Sender: FDA-Public Use
  Company Number: GB-JNJFOC-20040700017

PATIENT
  Age: 2 Year
  Sex: Female

DRUGS (1)
  1. OVEX (MEBENDAZOLE) TABLETS [Suspect]
     Indication: HELMINTHIC INFECTION
     Dosage: 100 MG, ORAL
     Route: 048

REACTIONS (4)
  - ASPHYXIA [None]
  - CHOKING [None]
  - FOREIGN BODY TRAUMA [None]
  - OBSTRUCTIVE AIRWAYS DISORDER [None]
